FAERS Safety Report 9918148 (Version 1)
Quarter: 2014Q1

REPORT INFORMATION
  Report Type: Spontaneous
  Country: US (occurrence: US)
  Receive Date: 20140223
  Receipt Date: 20140223
  Transmission Date: 20141002
  Serious: No
  Sender: FDA-Public Use
  Company Number: US-ALLERGAN-1313289US

PATIENT
  Sex: Female

DRUGS (3)
  1. OZURDEX [Suspect]
     Indication: PRODUCT USED FOR UNKNOWN INDICATION
     Dosage: 0.7 MG, SINGLE
     Route: 031
     Dates: start: 20130802, end: 20130802
  2. NOVOLOG [Concomitant]
     Indication: DIABETES MELLITUS
  3. HUMALOG [Concomitant]
     Indication: DIABETES MELLITUS

REACTIONS (1)
  - Hyperglycaemia [Unknown]
